FAERS Safety Report 23937546 (Version 2)
Quarter: 2024Q3

REPORT INFORMATION
  Report Type: Report from Study
  Country: CN (occurrence: CN)
  Receive Date: 20240604
  Receipt Date: 20240823
  Transmission Date: 20241017
  Serious: Yes (Other)
  Sender: TAKEDA
  Company Number: CN-TAKEDA-2023TUS067225

PATIENT
  Age: 56 Year
  Sex: Male
  Weight: 70 kg

DRUGS (16)
  1. VEDOLIZUMAB [Suspect]
     Active Substance: VEDOLIZUMAB
     Indication: Colitis ulcerative
     Dosage: 300 MILLIGRAM
     Route: 042
     Dates: start: 20230110, end: 20230630
  2. IRBESARTAN [Concomitant]
     Active Substance: IRBESARTAN
     Indication: Hypertension
     Dosage: UNK UNK, BID
     Route: 048
     Dates: start: 2010
  3. NIFEDIPINE [Concomitant]
     Active Substance: NIFEDIPINE
     Indication: Hypertension
     Dosage: UNK UNK, TID
     Route: 048
     Dates: start: 2010
  4. METOPROLOL SUCCINATE [Concomitant]
     Active Substance: METOPROLOL SUCCINATE
     Indication: Hypertension
     Dosage: 50 MILLIGRAM, TID
     Route: 048
     Dates: start: 20230105
  5. MESALAMINE [Concomitant]
     Active Substance: MESALAMINE
     Indication: Inflammatory bowel disease
     Dosage: 4 GRAM, QD
     Route: 048
     Dates: start: 202001
  6. MESALAMINE [Concomitant]
     Active Substance: MESALAMINE
     Dosage: 0.5 GRAM, QD
     Route: 054
     Dates: start: 20230707
  7. TRIMEBUTINE MALEATE [Concomitant]
     Active Substance: TRIMEBUTINE MALEATE
     Indication: Gastrointestinal disorder
     Dosage: 0.1 GRAM, TID
     Route: 048
     Dates: start: 20230101, end: 202308
  8. Compound glutamine [Concomitant]
     Indication: Gastrointestinal disorder prophylaxis
     Dosage: 660 MILLIGRAM, BID
     Route: 048
     Dates: start: 20230102, end: 202308
  9. MESALAMINE [Concomitant]
     Active Substance: MESALAMINE
     Indication: Inflammatory bowel disease
     Dosage: UNK
     Dates: start: 20200601
  10. ILAPRAZOLE [Concomitant]
     Active Substance: ILAPRAZOLE
     Indication: Gastric pH decreased
     Dosage: 10 MILLIGRAM, BID
     Route: 042
     Dates: start: 20230706, end: 20230706
  11. ILAPRAZOLE [Concomitant]
     Active Substance: ILAPRAZOLE
     Dosage: 10 MILLIGRAM, QD
     Route: 042
     Dates: start: 20230707, end: 20230713
  12. GANCICLOVIR [Concomitant]
     Active Substance: GANCICLOVIR
     Indication: Antiviral treatment
     Dosage: 250 MILLIGRAM, QD
     Route: 042
     Dates: start: 20230713, end: 20230724
  13. GANCICLOVIR [Concomitant]
     Active Substance: GANCICLOVIR
     Dosage: 250 MILLIGRAM, BID
     Route: 042
     Dates: start: 20230712, end: 20230712
  14. SODIUM POTASSIUM MAGNESIUM CALCIUM AND GLUCOSE [Concomitant]
     Indication: Electrolyte substitution therapy
     Dosage: 500 MILLILITER, QD
     Route: 042
     Dates: start: 20230705, end: 20230705
  15. SODIUM POTASSIUM MAGNESIUM CALCIUM AND GLUCOSE [Concomitant]
     Dosage: 500 MILLILITER, QD
     Route: 042
     Dates: start: 20230710, end: 20230710
  16. POTASSIUM CITRATE [Concomitant]
     Active Substance: POTASSIUM CITRATE
     Indication: Mineral supplementation
     Dosage: 1.45 GRAM, QD
     Route: 048
     Dates: start: 20230711, end: 202308

REACTIONS (3)
  - Hypokalaemia [Not Recovered/Not Resolved]
  - Diarrhoea [Not Recovered/Not Resolved]
  - Hypoalbuminaemia [Not Recovered/Not Resolved]

NARRATIVE: CASE EVENT DATE: 20230601
